FAERS Safety Report 9751546 (Version 2)
Quarter: 2013Q4

REPORT INFORMATION
  Report Type: Report from Study
  Country: US (occurrence: US)
  Receive Date: 20131212
  Receipt Date: 20131213
  Transmission Date: 20140711
  Serious: Yes (Hospitalization, Other)
  Sender: FDA-Public Use
  Company Number: US-ABBVIE-13P-163-1175959-00

PATIENT
  Age: 17 Year
  Sex: Female
  Weight: 49.94 kg

DRUGS (8)
  1. HUMIRA [Suspect]
     Indication: COLITIS ULCERATIVE
     Dates: start: 201303, end: 201303
  2. HUMIRA [Suspect]
     Dates: start: 201303, end: 201303
  3. HUMIRA [Suspect]
     Dates: start: 201304, end: 201307
  4. CORTICOSTEROIDS [Concomitant]
     Indication: COLITIS ULCERATIVE
  5. HYDROCORTISONE [Concomitant]
     Indication: COLITIS ULCERATIVE
  6. FOLIC ACID [Concomitant]
     Indication: VITAMIN SUPPLEMENTATION
  7. VITAMIN C [Concomitant]
     Indication: VITAMIN SUPPLEMENTATION
  8. IRON [Concomitant]
     Indication: HAEMOGLOBIN DECREASED

REACTIONS (13)
  - Vision blurred [Not Recovered/Not Resolved]
  - Colitis ulcerative [Recovered/Resolved]
  - Drug ineffective [Not Recovered/Not Resolved]
  - Adrenal insufficiency [Unknown]
  - Visual impairment [Recovering/Resolving]
  - Diplopia [Unknown]
  - Headache [Unknown]
  - Thrombosis [Recovering/Resolving]
  - Visual impairment [Unknown]
  - Anti factor VIII antibody positive [Recovered/Resolved]
  - Colectomy [Recovered/Resolved]
  - Haemoglobin decreased [Unknown]
  - Visual impairment [Not Recovered/Not Resolved]
